FAERS Safety Report 18050493 (Version 2)
Quarter: 2020Q4

REPORT INFORMATION
  Report Type: Spontaneous
  Country: US (occurrence: US)
  Receive Date: 20200721
  Receipt Date: 20201027
  Transmission Date: 20210113
  Serious: Yes (Hospitalization, Disabling, Other)
  Sender: FDA-Public Use
  Company Number: US-PURDUE-USA-2020-0156385

PATIENT
  Sex: Female

DRUGS (7)
  1. SOMA [Suspect]
     Active Substance: CARISOPRODOL
     Indication: PAIN
     Dosage: UNK
     Route: 048
     Dates: end: 2018
  2. METHOCARBAMOL. [Suspect]
     Active Substance: METHOCARBAMOL
     Indication: SLEEP DISORDER
     Dosage: UNK
     Route: 048
  3. HYDROCODONE BITARTRATE (SIMILAR TO NDA 206627) [Suspect]
     Active Substance: HYDROCODONE BITARTRATE
     Indication: PAIN
     Dosage: UNK
     Route: 048
  4. OXYCONTIN [Suspect]
     Active Substance: OXYCODONE HYDROCHLORIDE
     Indication: PAIN
     Dosage: 20 MG, FOUR A DAY
     Route: 048
     Dates: end: 2010
  5. SCOPOLAMINE                        /00008701/ [Suspect]
     Active Substance: SCOPOLAMINE
     Indication: SLEEP DISORDER
     Dosage: UNK
     Route: 048
  6. TRAMADOL. [Suspect]
     Active Substance: TRAMADOL
     Indication: PAIN
     Dosage: UNK
     Route: 048
  7. BENADRYL [Suspect]
     Active Substance: DIPHENHYDRAMINE HYDROCHLORIDE
     Indication: PRURITUS
     Dosage: UNK
     Route: 048

REACTIONS (12)
  - Imprisonment [Unknown]
  - Neck surgery [Unknown]
  - Euphoric mood [Recovered/Resolved]
  - Drug dependence [Unknown]
  - Drug diversion [Unknown]
  - Nausea [Recovered/Resolved]
  - Injury [Unknown]
  - Spinal operation [Unknown]
  - Rotator cuff repair [Recovered/Resolved]
  - Road traffic accident [Unknown]
  - Pruritus [Recovered/Resolved]
  - Headache [Unknown]
